FAERS Safety Report 13582510 (Version 2)
Quarter: 2017Q2

REPORT INFORMATION
  Report Type: Spontaneous
  Country: ME (occurrence: ME)
  Receive Date: 20170525
  Receipt Date: 20170602
  Transmission Date: 20170830
  Serious: Yes (Other)
  Sender: FDA-Public Use
  Company Number: ME-PFIZER INC-2017229488

PATIENT
  Age: 64 Year
  Sex: Female
  Weight: 85 kg

DRUGS (2)
  1. MOVALIS [Concomitant]
     Active Substance: MELOXICAM
     Indication: SCIATICA
     Dosage: 15 MG, 1X/DAY
     Route: 048
     Dates: start: 20170501, end: 20170509
  2. LYRICA [Suspect]
     Active Substance: PREGABALIN
     Indication: SCIATICA
     Dosage: 75 MG, 2X/DAY
     Route: 048
     Dates: start: 20170508, end: 20170509

REACTIONS (2)
  - Suffocation feeling [Recovered/Resolved]
  - Tongue disorder [Recovered/Resolved]

NARRATIVE: CASE EVENT DATE: 20170508
